FAERS Safety Report 25765881 (Version 1)
Quarter: 2025Q3

REPORT INFORMATION
  Report Type: Spontaneous
  Country: US (occurrence: US)
  Receive Date: 20250905
  Receipt Date: 20250905
  Transmission Date: 20251020
  Serious: No
  Sender: DOMPE FARMACEUTICI
  Company Number: US-FARMAPROD-202407-2615

PATIENT
  Sex: Female

DRUGS (12)
  1. OXERVATE [Suspect]
     Active Substance: CENEGERMIN-BKBJ
     Indication: Neurotrophic keratopathy
     Route: 047
     Dates: start: 20240610, end: 20240806
  2. OXERVATE [Suspect]
     Active Substance: CENEGERMIN-BKBJ
  3. GINGER [Concomitant]
     Active Substance: GINGER
  4. HERBALS\TURMERIC [Concomitant]
     Active Substance: HERBALS\TURMERIC
  5. MULTIVITAMIN 50 PLUS [Concomitant]
  6. REFRESH CLASSIC [Concomitant]
     Active Substance: POLYVINYL ALCOHOL\POVIDONE
  7. POLYMYXIN B SUL-TRIMETHOPRIM [Concomitant]
  8. PRED FORTE [Concomitant]
     Active Substance: PREDNISOLONE ACETATE
  9. HYDROCHLOROTHIAZIDE [Concomitant]
     Active Substance: HYDROCHLOROTHIAZIDE
  10. BISOPROLOL FUMARATE [Concomitant]
     Active Substance: BISOPROLOL FUMARATE
  11. LOSARTAN POTASSIUM [Concomitant]
     Active Substance: LOSARTAN POTASSIUM
  12. NIFEDIPINE [Concomitant]
     Active Substance: NIFEDIPINE

REACTIONS (12)
  - Eyelid margin crusting [Unknown]
  - Eye pain [Not Recovered/Not Resolved]
  - Ocular discomfort [Unknown]
  - Photophobia [Not Recovered/Not Resolved]
  - Headache [Not Recovered/Not Resolved]
  - Lacrimation increased [Recovering/Resolving]
  - Dizziness [Unknown]
  - Periorbital pain [Unknown]
  - Gingival discomfort [Unknown]
  - Foreign body sensation in eyes [Recovering/Resolving]
  - Eye swelling [Unknown]
  - Eyelid ptosis [Unknown]
